FAERS Safety Report 22357847 (Version 6)
Quarter: 2024Q3

REPORT INFORMATION
  Report Type: Spontaneous
  Country: DE (occurrence: DE)
  Receive Date: 20230524
  Receipt Date: 20240723
  Transmission Date: 20241016
  Serious: Yes (Hospitalization, Other)
  Sender: AUROBINDO
  Company Number: DE-BRISTOL-MYERS SQUIBB COMPANY-2023-066803

PATIENT
  Age: 70 Year
  Sex: Male

DRUGS (18)
  1. PEMETREXED [Suspect]
     Active Substance: PEMETREXED
     Indication: Non-small cell lung cancer
     Dosage: 445 MILLIGRAM (EVERY 2 WEEK)
     Route: 042
     Dates: start: 20230413, end: 20230510
  2. CARBOPLATIN [Suspect]
     Active Substance: CARBOPLATIN
     Indication: Non-small cell lung cancer
     Dosage: 445 MILLIGRAM EVERY 2 WEEK
     Route: 042
     Dates: start: 20230413, end: 20230510
  3. OPDIVO [Suspect]
     Active Substance: NIVOLUMAB
     Indication: Non-small cell lung cancer
     Dosage: 360 MILLIGRAM EVERY 2 WEEK
     Route: 042
     Dates: start: 20230413, end: 20230517
  4. OPDIVO [Suspect]
     Active Substance: NIVOLUMAB
     Dosage: 360 MILLIGRAM EVERY 2 WEEK
     Route: 042
     Dates: start: 20230413, end: 20230628
  5. YERVOY [Suspect]
     Active Substance: IPILIMUMAB
     Indication: Non-small cell lung cancer
     Dosage: 75 MILLIGRAM EVERY 2 WEEK
     Route: 042
     Dates: start: 20230413
  6. YERVOY [Suspect]
     Active Substance: IPILIMUMAB
     Dosage: 92 MILLIGRAM, 2 WEEK
     Route: 042
     Dates: start: 20230413, end: 20230517
  7. YERVOY [Suspect]
     Active Substance: IPILIMUMAB
     Dosage: 92 MILLIGRAM, 2 WEEK
     Route: 042
     Dates: start: 20230413, end: 20230601
  8. TAPENTADOL [Concomitant]
     Active Substance: TAPENTADOL
     Indication: Adverse event
     Dosage: UNK
     Route: 065
  9. CANDESARTAN [Concomitant]
     Active Substance: CANDESARTAN
     Indication: Product used for unknown indication
     Dosage: UNK
     Route: 065
     Dates: start: 20230102
  10. BUDESONIDE [Concomitant]
     Active Substance: BUDESONIDE
     Indication: Product used for unknown indication
     Dosage: UNK
     Route: 065
     Dates: start: 20230430
  11. PIPERACILLIN SODIUM\TAZOBACTAM SODIUM [Concomitant]
     Active Substance: PIPERACILLIN SODIUM\TAZOBACTAM SODIUM
     Indication: Adverse event
     Dosage: UNK
     Route: 065
     Dates: start: 20230429
  12. HYDROCORTISONE [Concomitant]
     Active Substance: HYDROCORTISONE\HYDROCORTISONE ACETATE
     Indication: Adverse event
     Dosage: UNK
     Route: 065
     Dates: start: 20230607
  13. Kalinor [Concomitant]
     Indication: Product used for unknown indication
     Dosage: UNK
     Route: 065
     Dates: start: 20230607
  14. PANTOPRAZOLE SODIUM [Concomitant]
     Active Substance: PANTOPRAZOLE SODIUM
     Indication: Product used for unknown indication
     Dosage: UNK
     Route: 065
     Dates: start: 20230607
  15. RISPERDAL [Concomitant]
     Active Substance: RISPERIDONE
     Indication: Adverse event
     Dosage: UNK
     Route: 065
     Dates: start: 20230607
  16. SPIRONOLACTONE [Concomitant]
     Active Substance: SPIRONOLACTONE
     Indication: Adverse event
     Dosage: UNK
     Route: 065
     Dates: start: 20230607
  17. PIPERACILLIN [Concomitant]
     Active Substance: PIPERACILLIN
     Indication: Product used for unknown indication
     Dosage: UNK
     Route: 065
     Dates: start: 20230619, end: 20230625
  18. TAZOBACTAM [Concomitant]
     Active Substance: TAZOBACTAM
     Indication: Adverse event
     Dosage: UNK
     Route: 065
     Dates: start: 20230619, end: 20230625

REACTIONS (8)
  - Autoimmune hepatitis [Unknown]
  - Acute kidney injury [Not Recovered/Not Resolved]
  - Hypophysitis [Not Recovered/Not Resolved]
  - Delusion [Unknown]
  - Fatigue [Unknown]
  - Hypotension [Unknown]
  - Inflammatory marker increased [Unknown]
  - Off label use [Unknown]

NARRATIVE: CASE EVENT DATE: 20230429
